FAERS Safety Report 24430808 (Version 1)
Quarter: 2024Q4

REPORT INFORMATION
  Report Type: Spontaneous
  Country: BE (occurrence: BE)
  Receive Date: 20241014
  Receipt Date: 20241014
  Transmission Date: 20250115
  Serious: Yes (Hospitalization, Other)
  Sender: JOHNSON AND JOHNSON
  Company Number: BE-JNJFOC-20240937203

PATIENT
  Age: 76 Year
  Sex: Male
  Weight: 83 kg

DRUGS (14)
  1. TECVAYLI [Suspect]
     Active Substance: TECLISTAMAB-CQYV
     Indication: Plasma cell myeloma
     Dosage: D1, 8, 15, 22 Q28 DAYS
     Route: 058
     Dates: start: 20240219, end: 20240527
  2. ACYCLOVIR [Concomitant]
     Active Substance: ACYCLOVIR
     Indication: Prophylaxis
     Route: 048
  3. DEXPANTHENOL [Concomitant]
     Active Substance: DEXPANTHENOL
     Indication: Prophylaxis
     Route: 048
  4. XARELTO [Concomitant]
     Active Substance: RIVAROXABAN
     Indication: Prophylaxis
     Route: 048
  5. TAMSULOSIN [Concomitant]
     Active Substance: TAMSULOSIN
     Indication: Benign prostatic hyperplasia
     Route: 048
  6. ALLOPURINOL [Concomitant]
     Active Substance: ALLOPURINOL
     Indication: Prophylaxis
     Route: 048
  7. DEXAMETHASONE [Concomitant]
     Active Substance: DEXAMETHASONE
     Dates: start: 20240707, end: 20240710
  8. DEXAMETHASONE [Concomitant]
     Active Substance: DEXAMETHASONE
     Dates: start: 20240711, end: 20240728
  9. MEDROL [Concomitant]
     Active Substance: METHYLPREDNISOLONE
     Dates: start: 20240729, end: 20240802
  10. MEDROL [Concomitant]
     Active Substance: METHYLPREDNISOLONE
     Dates: start: 20240803, end: 20240807
  11. MEDROL [Concomitant]
     Active Substance: METHYLPREDNISOLONE
     Dates: start: 20240803, end: 20240807
  12. MEDROL [Concomitant]
     Active Substance: METHYLPREDNISOLONE
     Dates: start: 20240808, end: 20240812
  13. MEDROL [Concomitant]
     Active Substance: METHYLPREDNISOLONE
     Dates: start: 20240813, end: 20240817
  14. MEDROL [Concomitant]
     Active Substance: METHYLPREDNISOLONE
     Dates: start: 20240818, end: 20240822

REACTIONS (5)
  - Hepatotoxicity [Unknown]
  - Blood alkaline phosphatase increased [Recovered/Resolved]
  - Depressed level of consciousness [Recovered/Resolved]
  - Confusional state [Recovered/Resolved]
  - Ataxia [Recovered/Resolved]

NARRATIVE: CASE EVENT DATE: 20240422
